FAERS Safety Report 17850500 (Version 1)
Quarter: 2020Q2

REPORT INFORMATION
  Report Type: Spontaneous
  Country: US (occurrence: US)
  Receive Date: 20200602
  Receipt Date: 20200602
  Transmission Date: 20200714
  Serious: Yes (Death, Other)
  Sender: FDA-Public Use
  Company Number: US-PFIZER INC-2020039059

PATIENT
  Age: 84 Year
  Sex: Female
  Weight: 40.82 kg

DRUGS (1)
  1. XELJANZ XR [Suspect]
     Active Substance: TOFACITINIB CITRATE
     Indication: RHEUMATOID ARTHRITIS
     Dosage: 11 MG, 1X/DAY
     Route: 048
     Dates: start: 2016

REACTIONS (6)
  - Chronic obstructive pulmonary disease [Unknown]
  - Eating disorder [Unknown]
  - Camptocormia [Unknown]
  - Dyspnoea [Unknown]
  - Death [Fatal]
  - Body height decreased [Unknown]

NARRATIVE: CASE EVENT DATE: 20200528
